FAERS Safety Report 5412970-3 (Version None)
Quarter: 2007Q3

REPORT INFORMATION
  Report Type: 
  Country: None (occurrence: None)
  Receive Date: 20070809
  Receipt Date: 20070802
  Transmission Date: 20080115
  Serious: Yes (Hospitalization)
  Sender: FDA-Public Use
  Company Number: 2007SP012579

PATIENT
  Age: 65 Year
  Sex: Male

DRUGS (2)
  1. PEG-INTRON [Suspect]
     Indication: HEPATITIS C
     Dosage: 100 MCG;QW;SC
     Route: 058
     Dates: start: 20060901, end: 20070630
  2. REBETOL [Suspect]
     Indication: HEPATITIS C
     Dosage: 600 MG; PO
     Route: 048
     Dates: start: 20060901, end: 20070630

REACTIONS (3)
  - INJECTION SITE INDURATION [None]
  - LIVER DISORDER [None]
  - PHARYNGEAL CANCER STAGE UNSPECIFIED [None]
